FAERS Safety Report 22592576 (Version 2)
Quarter: 2023Q4

REPORT INFORMATION
  Report Type: Report from Study
  Country: US (occurrence: US)
  Receive Date: 20230613
  Receipt Date: 20231004
  Transmission Date: 20240109
  Serious: Yes (Other)
  Sender: FDA-Public Use
  Company Number: US-ABBVIE-4304509

PATIENT
  Sex: Female

DRUGS (4)
  1. SKYRIZI [Suspect]
     Active Substance: RISANKIZUMAB-RZAA
     Indication: Psoriatic arthropathy
     Dosage: TIME INTERVAL: TOTAL: 150 MILLIGRAM?WEEK 0
     Route: 058
     Dates: start: 20230203, end: 20230203
  2. SKYRIZI [Suspect]
     Active Substance: RISANKIZUMAB-RZAA
     Indication: Psoriasis
  3. SKYRIZI [Suspect]
     Active Substance: RISANKIZUMAB-RZAA
     Indication: Psoriatic arthropathy
     Dosage: TIME INTERVAL: TOTAL: WEEK 4?FORM STRENGTH: 150 MG
     Route: 058
     Dates: start: 202303, end: 202303
  4. SKYRIZI [Suspect]
     Active Substance: RISANKIZUMAB-RZAA
     Indication: Psoriasis
     Dosage: FORM STRENGTH: 150 MG/ML
     Route: 058
     Dates: start: 202304

REACTIONS (15)
  - Loss of consciousness [Not Recovered/Not Resolved]
  - Papule [Unknown]
  - Finger deformity [Not Recovered/Not Resolved]
  - Poor quality sleep [Unknown]
  - Menopause [Unknown]
  - Loss of personal independence in daily activities [Unknown]
  - Bronchitis [Unknown]
  - Hypoaesthesia [Not Recovered/Not Resolved]
  - Upper respiratory tract infection [Unknown]
  - Pain [Unknown]
  - Gait disturbance [Unknown]
  - Injection site pain [Unknown]
  - Influenza [Unknown]
  - Pain in extremity [Not Recovered/Not Resolved]
  - Drug ineffective [Unknown]

NARRATIVE: CASE EVENT DATE: 20230101
